FAERS Safety Report 8259797 (Version 7)
Quarter: 2016Q2

REPORT INFORMATION
  Report Type: Spontaneous
  Country: US (occurrence: US)
  Receive Date: 20111122
  Receipt Date: 20160411
  Transmission Date: 20160815
  Serious: Yes (Hospitalization, Disabling, Other)
  Sender: FDA-Public Use
  Company Number: US-MERCK-1111USA02610

PATIENT
  Sex: Female
  Weight: 54 kg

DRUGS (4)
  1. BONIVA [Suspect]
     Active Substance: IBANDRONATE SODIUM
     Indication: OSTEOPOROSIS
     Dosage: 150 MG, QW IN AM
     Route: 048
     Dates: start: 20060519
  2. FOSAMAX [Suspect]
     Active Substance: ALENDRONATE SODIUM
     Indication: OSTEOPOROSIS
     Dosage: 70 MG, QW IN AM
     Route: 048
     Dates: start: 20030217, end: 20070414
  3. FOSAMAX PLUS D [Suspect]
     Active Substance: ALENDRONATE SODIUM\CHOLECALCIFEROL
     Indication: OSTEOPOROSIS
     Dosage: 70 MG/2800 IU, QW IN AM
     Route: 048
     Dates: start: 20070518, end: 20100728
  4. FOSAMAX [Suspect]
     Active Substance: ALENDRONATE SODIUM
     Indication: BONE DENSITY DECREASED
     Dosage: 70 MG, UNK
     Route: 048
     Dates: start: 20020226

REACTIONS (24)
  - Hyperlipidaemia [Unknown]
  - Pain in extremity [Unknown]
  - Periodontal disease [Unknown]
  - Intramedullary rod insertion [Unknown]
  - Hypokalaemia [Unknown]
  - Glucose tolerance impaired [Unknown]
  - Type 2 diabetes mellitus [Unknown]
  - Gait disturbance [Unknown]
  - Cholelithiasis [Unknown]
  - Femur fracture [Not Recovered/Not Resolved]
  - Foot fracture [Unknown]
  - Disturbance in attention [Unknown]
  - Anxiety [Unknown]
  - Post-traumatic stress disorder [Unknown]
  - Femur fracture [Not Recovered/Not Resolved]
  - Vulvovaginal dryness [Unknown]
  - Ovarian cyst [Unknown]
  - Asthenia [Unknown]
  - Anaemia postoperative [Unknown]
  - Pain in extremity [Unknown]
  - Feeling abnormal [Unknown]
  - Muscular weakness [Unknown]
  - Depression [Unknown]
  - Frustration tolerance decreased [Unknown]

NARRATIVE: CASE EVENT DATE: 20050421
